FAERS Safety Report 6153403-1 (Version None)
Quarter: 2009Q2

REPORT INFORMATION
  Report Type: 
  Country: None (occurrence: None)
  Receive Date: 20090409
  Receipt Date: 20090409
  Transmission Date: 20091009
  Serious: No
  Sender: FDA-Public Use
  Company Number: None

PATIENT
  Age: 83 Year
  Sex: Female

DRUGS (1)
  1. CLINDAMYCIN PHOSPHATE [Suspect]
     Indication: LOCALISED INFECTION
     Dosage: 600 MG EVERY 8 HOURS IV PIGGYBACK
     Route: 042
     Dates: start: 20090328, end: 20090330

REACTIONS (2)
  - RASH ERYTHEMATOUS [None]
  - RASH PAPULAR [None]
